FAERS Safety Report 4585673-5 (Version None)
Quarter: 2005Q1

REPORT INFORMATION
  Report Type: 
  Country: None (occurrence: None)
  Receive Date: 20050214
  Receipt Date: 20050202
  Transmission Date: 20050727
  Serious: Yes (Other)
  Sender: FDA-Public Use
  Company Number: 2005025218

PATIENT
  Age: 55 Year
  Sex: Male

DRUGS (7)
  1. IRINOTECAN HCL [Suspect]
     Indication: RECTAL CANCER
  2. METHYLPREDNISOLONE SODIUM SUCCINATE [Suspect]
     Indication: ILL-DEFINED DISORDER
     Dosage: 250 MG FOR 3 DAYS
  3. CALCIUM LEVOFOLINATE (CALCIUM LEVOFOLINATE) [Concomitant]
  4. FENTANYL [Concomitant]
  5. MORPHINE SULFATE [Concomitant]
  6. FLUOROURACIL [Concomitant]
  7. BETAMETHASONE [Concomitant]

REACTIONS (3)
  - DUODENAL PERFORATION [None]
  - GASTROINTESTINAL INJURY [None]
  - PERITONITIS [None]
